FAERS Safety Report 5715889-3 (Version None)
Quarter: 2008Q2

REPORT INFORMATION
  Report Type: 
  Country: None (occurrence: None)
  Receive Date: 20080424
  Receipt Date: 20080415
  Transmission Date: 20081010
  Serious: Yes (Other)
  Sender: FDA-Public Use
  Company Number: GB-TEVA-170196ISR

PATIENT
  Age: 32 Year
  Sex: Female
  Weight: 94 kg

DRUGS (1)
  1. MIRTAZAPINE [Suspect]
     Route: 048

REACTIONS (2)
  - ELECTROCARDIOGRAM QRS COMPLEX PROLONGED [None]
  - OVERDOSE [None]
